FAERS Safety Report 8621890-2 (Version None)
Quarter: 2012Q3

REPORT INFORMATION
  Report Type: 
  Country: None (occurrence: None)
  Receive Date: 20120822
  Receipt Date: 20120822
  Transmission Date: 20120928
  Serious: Yes (Hospitalization)
  Sender: FDA-Public Use
  Company Number: None

PATIENT
  Sex: Female
  Weight: 77.9 kg

DRUGS (2)
  1. PEMETREXED [Suspect]
     Dosage: 950 MG
  2. CARBOPLATIN [Suspect]
     Dosage: 650 MG

REACTIONS (2)
  - DYSARTHRIA [None]
  - HEMIPARESIS [None]
